FAERS Safety Report 4394980-0 (Version None)
Quarter: 2004Q3

REPORT INFORMATION
  Report Type: 
  Country: None (occurrence: None)
  Receive Date: 20040706
  Receipt Date: 20040621
  Transmission Date: 20050211
  Serious: Yes (Hospitalization)
  Sender: FDA-Public Use
  Company Number: 2004CG01194

PATIENT
  Age: 78 Year
  Sex: Male

DRUGS (6)
  1. APACEF [Suspect]
     Dates: start: 20040409, end: 20040409
  2. DIPRIVAN [Suspect]
     Indication: INDUCTION OF ANAESTHESIA
     Dates: start: 20040409, end: 20040409
  3. SUFENTA [Suspect]
     Indication: INDUCTION OF ANAESTHESIA
     Dates: start: 20040409, end: 20040409
  4. MIDAZOLAM [Suspect]
     Indication: INDUCTION OF ANAESTHESIA
     Dates: start: 20040409, end: 20040409
  5. PYOSTACINE [Concomitant]
  6. PRAXILENE [Concomitant]

REACTIONS (2)
  - HYPERSENSITIVITY [None]
  - HYPOTENSION [None]
